FAERS Safety Report 4793732-7 (Version None)
Quarter: 2005Q4

REPORT INFORMATION
  Report Type: 
  Country: None (occurrence: None)
  Receive Date: 20051006
  Receipt Date: 20050923
  Transmission Date: 20060501
  Serious: Yes (Hospitalization, Other)
  Sender: FDA-Public Use
  Company Number: KII-2005-0018750

PATIENT
  Age: 45 Year
  Sex: Male

DRUGS (2)
  1. OXYCODONE HCL [Suspect]
     Dosage: ORAL
     Route: 048
  2. ACETAMINOPHEN AND OXYCODONE HCL [Suspect]

REACTIONS (7)
  - ACCIDENTAL OVERDOSE [None]
  - DRUG TOXICITY [None]
  - ENCEPHALOPATHY [None]
  - HYPERCAPNIA [None]
  - HYPERTENSION [None]
  - HYPOXIA [None]
  - SOMNOLENCE [None]
